FAERS Safety Report 10090076 (Version 1)
Quarter: 2014Q2

REPORT INFORMATION
  Report Type: Spontaneous
  Country: US (occurrence: None)
  Receive Date: 20140417
  Receipt Date: 20140417
  Transmission Date: 20141212
  Serious: Yes (Death)
  Sender: FDA-Public Use
  Company Number: UTC-047028

PATIENT
  Age: 58 Year
  Sex: Female
  Weight: 55.33 kg

DRUGS (1)
  1. REMODULIN [Suspect]
     Indication: PULMONARY ARTERIAL HYPERTENSION
     Dosage: (0.013 UG/KG, 1 IN 1 MIN)
     Route: 058
     Dates: start: 20131205

REACTIONS (1)
  - Death [None]
